FAERS Safety Report 8227813-2 (Version None)
Quarter: 2012Q1

REPORT INFORMATION
  Report Type: 
  Country: None (occurrence: None)
  Receive Date: 20120322
  Receipt Date: 20120315
  Transmission Date: 20120608
  Serious: Yes (Disabling, Other)
  Sender: FDA-Public Use
  Company Number: GB-UCBSA-051754

PATIENT
  Age: 43 Year
  Sex: Female

DRUGS (8)
  1. METFORMIN HCL [Concomitant]
  2. CIMZIA [Suspect]
     Indication: RHEUMATOID ARTHRITIS
     Dosage: 200 MG X 2, STARTING DOSE: 0,2 AND 4TH WEEK
     Route: 058
     Dates: start: 20120101, end: 20120101
  3. FOLIC ACID [Concomitant]
     Dosage: 5 MG WEEKLY
     Route: 048
  4. METHOTREXATE [Concomitant]
     Route: 042
  5. HYDROXYCHLOROQUINE SULFATE [Concomitant]
     Route: 048
  6. INSULIN [Concomitant]
     Dosage: UNKNOWN DOSE
  7. GLICLAZIDE [Concomitant]
  8. AZULFIDINE [Concomitant]
     Route: 048

REACTIONS (3)
  - DYSPHAGIA [None]
  - SWELLING FACE [None]
  - MASS [None]
